FAERS Safety Report 4948749-6 (Version None)
Quarter: 2006Q1

REPORT INFORMATION
  Report Type: 
  Country: None (occurrence: None)
  Receive Date: 20060315
  Receipt Date: 20060303
  Transmission Date: 20060701
  Serious: Yes (Life-Threatening)
  Sender: FDA-Public Use
  Company Number: 2006S1000035

PATIENT
  Age: 86 Year
  Sex: Female
  Weight: 113.3 kg

DRUGS (4)
  1. CUBICIN [Suspect]
     Indication: CELLULITIS
     Dosage: 5.5 MG/KG; Q24H;
     Dates: start: 20051102, end: 20051102
  2. VANCOMYCIN [Concomitant]
  3. LEVAQUIN [Concomitant]
  4. ANTICOAGULANT THERAPY [Concomitant]

REACTIONS (8)
  - FAECES DISCOLOURED [None]
  - GASTRIC POLYPS [None]
  - HAEMATOCRIT DECREASED [None]
  - HAEMATOMA [None]
  - HIATUS HERNIA [None]
  - HYPOTENSION [None]
  - OCCULT BLOOD POSITIVE [None]
  - PYREXIA [None]
